FAERS Safety Report 25041644 (Version 2)
Quarter: 2025Q1

REPORT INFORMATION
  Report Type: Spontaneous
  Country: US (occurrence: US)
  Receive Date: 20250305
  Receipt Date: 20250321
  Transmission Date: 20250409
  Serious: No
  Sender: ALEXION PHARMACEUTICALS
  Company Number: US-AstraZeneca-CH-00812778AP

PATIENT

DRUGS (2)
  1. BUDESONIDE\FORMOTEROL [Suspect]
     Active Substance: BUDESONIDE\FORMOTEROL
     Dosage: UNK UNK, BID, 80/4.5 120 INHALATIONS 2 PUFFS TWICE DAILY
     Route: 065
  2. PULMICORT TURBUHALER [Suspect]
     Active Substance: BUDESONIDE
     Route: 065

REACTIONS (7)
  - Off label use [Unknown]
  - Device use issue [Unknown]
  - Product dose omission issue [Unknown]
  - Influenza [Unknown]
  - Asthma [Unknown]
  - Illness [Unknown]
  - Therapy change [Unknown]
